FAERS Safety Report 4323619-5 (Version None)
Quarter: 2004Q1

REPORT INFORMATION
  Report Type: 
  Country: None (occurrence: None)
  Receive Date: 20040326
  Receipt Date: 20040315
  Transmission Date: 20041129
  Serious: Yes (Hospitalization)
  Sender: FDA-Public Use
  Company Number: GB-BRISTOL-MYERS SQUIBB COMPANY-12532834

PATIENT
  Age: 59 Year
  Sex: Female

DRUGS (9)
  1. CYCLOPHOSPHAMIDE [Suspect]
     Indication: BREAST CANCER
     Route: 042
     Dates: start: 20031126, end: 20031126
  2. PACLITAXEL [Suspect]
     Indication: BREAST CANCER
     Route: 042
     Dates: start: 20040218, end: 20040218
  3. EPIRUBICIN [Suspect]
     Indication: BREAST CANCER
     Route: 042
     Dates: start: 20031126, end: 20031126
  4. GTN SPRAY [Concomitant]
     Dates: start: 20020901
  5. SIMVASTATIN [Concomitant]
     Route: 048
     Dates: start: 20030301
  6. OMEPRAZOLE [Concomitant]
     Route: 048
     Dates: start: 19970601
  7. ENALAPRIL MALEATE [Concomitant]
     Route: 048
     Dates: start: 20020701
  8. CLOPIDOGREL BISULFATE [Concomitant]
     Route: 048
     Dates: start: 20020901
  9. ISOSORBIDE MONONITRATE [Concomitant]
     Dates: start: 20020901

REACTIONS (1)
  - CHEST PAIN [None]
